FAERS Safety Report 9064770 (Version 1)
Quarter: 2013Q1

REPORT INFORMATION
  Report Type: Spontaneous
  Country: CA (occurrence: CA)
  Receive Date: 20130214
  Receipt Date: 20130214
  Transmission Date: 20140127
  Serious: Yes (Other)
  Sender: FDA-Public Use
  Company Number: CA-AMGEN-CANSP2013009820

PATIENT
  Age: 52 Year
  Sex: Female

DRUGS (5)
  1. ENBREL [Suspect]
     Indication: ANKYLOSING SPONDYLITIS
     Dosage: 50 UNK, UNK
     Route: 058
     Dates: start: 20061209, end: 201204
  2. ENDOCET [Concomitant]
     Dosage: UNK
  3. TYLENOL /00020001/ [Concomitant]
     Dosage: UNK
  4. HUMIRA [Concomitant]
     Dosage: UNK
  5. NAPROXEN [Concomitant]
     Dosage: UNK

REACTIONS (4)
  - Iritis [Recovered/Resolved]
  - Deafness [Not Recovered/Not Resolved]
  - Drug effect decreased [Unknown]
  - Blood creatinine increased [Recovered/Resolved]
